FAERS Safety Report 9832110 (Version 4)
Quarter: 2014Q3

REPORT INFORMATION
  Report Type: Report from Study
  Country: US (occurrence: US)
  Receive Date: 20140121
  Receipt Date: 20140707
  Transmission Date: 20150326
  Serious: Yes (Other)
  Sender: FDA-Public Use
  Company Number: PHEH2014US001251

PATIENT
  Age: 76 Year
  Sex: Female

DRUGS (2)
  1. GLEEVEC [Suspect]
     Active Substance: IMATINIB MESYLATE
     Indication: CHRONIC MYELOID LEUKAEMIA
     Dosage: 4 DF, (ONCE A DAY WITH FOOD AND FULL GLASS OF WATER)
     Route: 048
     Dates: start: 20130531
  2. GLEEVEC [Suspect]
     Active Substance: IMATINIB MESYLATE
     Dosage: DOSE REDUCED TO HALF
     Route: 048
     Dates: end: 20140408

REACTIONS (7)
  - Nausea [Not Recovered/Not Resolved]
  - Second primary malignancy [Not Recovered/Not Resolved]
  - Diarrhoea [Not Recovered/Not Resolved]
  - Malaise [Not Recovered/Not Resolved]
  - Gastric cancer [Not Recovered/Not Resolved]
  - White blood cell count decreased [Not Recovered/Not Resolved]
  - Vomiting [Not Recovered/Not Resolved]

NARRATIVE: CASE EVENT DATE: 201310
